FAERS Safety Report 7460856-5 (Version None)
Quarter: 2011Q2

REPORT INFORMATION
  Report Type: 
  Country: None (occurrence: None)
  Receive Date: 20110505
  Receipt Date: 20110502
  Transmission Date: 20111010
  Serious: Yes (Hospitalization, Other)
  Sender: FDA-Public Use
  Company Number: CA-PFIZER INC-2011071724

PATIENT
  Age: 51 Year
  Sex: Female
  Weight: 61.224 kg

DRUGS (4)
  1. CELEBREX [Suspect]
     Indication: PAIN IN EXTREMITY
  2. CELEBREX [Suspect]
     Indication: BACK PAIN
  3. DILAUDID [Suspect]
     Indication: PAIN IN EXTREMITY
     Dosage: ONE TABLET TAKEN ONCE
     Route: 048
     Dates: start: 20100109, end: 20100109
  4. CELEBREX [Suspect]
     Indication: BURSITIS
     Dosage: 2 CAPSULES OF 200MG PER DAY AS NEEDED
     Route: 048
     Dates: start: 20080101, end: 20100109

REACTIONS (5)
  - VOMITING [None]
  - PALPITATIONS [None]
  - ANAPHYLACTIC REACTION [None]
  - BLOOD PRESSURE INCREASED [None]
  - TREMOR [None]
